FAERS Safety Report 19405934 (Version 1)
Quarter: 2021Q2

REPORT INFORMATION
  Report Type: Spontaneous
  Country: US (occurrence: US)
  Receive Date: 20210611
  Receipt Date: 20210611
  Transmission Date: 20210717
  Serious: Yes (Other)
  Sender: FDA-Public Use
  Company Number: US-SCA PHARMACEUTICALS-2021SCA00009

PATIENT
  Age: 67 Year
  Sex: Male
  Weight: 96 kg

DRUGS (6)
  1. OXYCODONE [Concomitant]
     Active Substance: OXYCODONE
  2. PHENYLEPHRINE HYDROCHLORIDE IN 0.9% SODIUM CHLORIDE [Suspect]
     Active Substance: PHENYLEPHRINE HYDROCHLORIDE
     Indication: HYPOTENSION
     Dosage: 100 ?G; ONE DOSE, IV PUSH
     Route: 042
     Dates: start: 20210524, end: 20210524
  3. ALPRAZOLAM. [Concomitant]
     Active Substance: ALPRAZOLAM
  4. PREGABALIN. [Concomitant]
     Active Substance: PREGABALIN
  5. ZOFRAN [Concomitant]
     Active Substance: ONDANSETRON HYDROCHLORIDE
  6. DECADRON [Concomitant]
     Active Substance: DEXAMETHASONE

REACTIONS (3)
  - Blood pressure systolic increased [Unknown]
  - Bradycardia [Recovered/Resolved]
  - Electrocardiogram QRS complex abnormal [Recovered/Resolved]

NARRATIVE: CASE EVENT DATE: 20210524
